FAERS Safety Report 9169834 (Version 2)
Quarter: 2013Q1

REPORT INFORMATION
  Report Type: Spontaneous
  Country: PR (occurrence: PR)
  Receive Date: 20130319
  Receipt Date: 20130322
  Transmission Date: 20140127
  Serious: Yes (Life-Threatening, Hospitalization, Other)
  Sender: FDA-Public Use
  Company Number: PHHY2013PR026124

PATIENT
  Age: 71 Year
  Sex: Male

DRUGS (3)
  1. CO-TRIMOXAZOLE [Suspect]
     Indication: CELLULITIS
     Dosage: 02 DF, Q12H
     Route: 048
  2. LISINOPRIL [Suspect]
     Indication: BLOOD PRESSURE
     Dosage: 40 MG, QD
  3. METOPROLOL [Suspect]
     Indication: BLOOD PRESSURE
     Dosage: 100 MG, Q8H

REACTIONS (5)
  - Hyperkalaemia [Recovered/Resolved]
  - Unresponsive to stimuli [Recovered/Resolved]
  - Atrioventricular block complete [Recovered/Resolved]
  - Decreased activity [Recovered/Resolved]
  - Myalgia [Recovered/Resolved]
